FAERS Safety Report 22119535 (Version 3)
Quarter: 2023Q2

REPORT INFORMATION
  Report Type: Spontaneous
  Country: IT (occurrence: IT)
  Receive Date: 20230321
  Receipt Date: 20230403
  Transmission Date: 20230721
  Serious: Yes (Death, Hospitalization, Other)
  Sender: FDA-Public Use
  Company Number: IT-MYLANLABS-2023M1026809

PATIENT
  Age: 56 Year
  Sex: Male

DRUGS (9)
  1. CARBOPLATIN [Suspect]
     Active Substance: CARBOPLATIN
     Indication: Pleural mesothelioma malignant
     Dosage: UNK, CYCLIC (FOR 6 CYCLES)
     Dates: start: 201908, end: 202001
  2. PEMETREXED [Suspect]
     Active Substance: PEMETREXED
     Indication: Pleural mesothelioma malignant
     Dosage: UNK, CYCLIC (FOR 6 CYCLES)
     Dates: start: 201908, end: 202001
  3. ACETYLCYSTEINE [Concomitant]
     Active Substance: ACETYLCYSTEINE
     Dosage: 600 MG, DAILY, 1 TABLET DAILY
     Route: 048
  4. VITAMIN D NOS [Concomitant]
     Active Substance: VITAMIN D NOS
     Dosage: 50000 IU, MONTHLY,1 VIAL/MONTH
     Route: 048
  5. VITAMIN C [Concomitant]
     Active Substance: ASCORBIC ACID
     Dosage: 1000 MG, DAILY, 3 VIALS/DAY
     Route: 042
  6. PROBIOTICS NOS [Concomitant]
     Active Substance: PROBIOTICS NOS
  7. HERBALS [Concomitant]
     Active Substance: HERBALS
     Dosage: 300 MG
  8. GANODERMA [Concomitant]
     Dosage: 300 MG
  9. LENTINULA EDODES [Concomitant]
     Dosage: 300 MG, DAILY, 2 TABLETS/DAY

REACTIONS (4)
  - Neoplasm progression [Fatal]
  - Acute kidney injury [Recovering/Resolving]
  - Fatigue [Unknown]
  - Off label use [Unknown]

NARRATIVE: CASE EVENT DATE: 20190801
